FAERS Safety Report 21906369 (Version 1)
Quarter: 2023Q1

REPORT INFORMATION
  Report Type: Spontaneous
  Country: CN (occurrence: CN)
  Receive Date: 20230125
  Receipt Date: 20230125
  Transmission Date: 20230417
  Serious: Yes (Hospitalization)
  Sender: FDA-Public Use
  Company Number: CN-BoehringerIngelheim-2023-BI-213424

PATIENT
  Age: 72 Year
  Sex: Male
  Weight: 53 kg

DRUGS (1)
  1. ALTEPLASE [Suspect]
     Active Substance: ALTEPLASE
     Indication: Thrombosis
     Dosage: 10 PERCENT (%) OF THE TOTAL DOSE WAS INTRAVENOUSLY INJECTED FOR 1 MINUTE; THE REMAINING DOSE WAS CON
     Route: 042
     Dates: start: 20230112, end: 20230112

REACTIONS (2)
  - Cerebral haemorrhage [Unknown]
  - Headache [Unknown]

NARRATIVE: CASE EVENT DATE: 20230112
